FAERS Safety Report 7744500-5 (Version None)
Quarter: 2011Q3

REPORT INFORMATION
  Report Type: 
  Country: None (occurrence: None)
  Receive Date: 20110912
  Receipt Date: 20110810
  Transmission Date: 20111222
  Serious: Yes (Other)
  Sender: FDA-Public Use
  Company Number: US-MYLANLABS-2011S1016705

PATIENT
  Age: 43 Year
  Sex: Male
  Weight: 70 kg

DRUGS (6)
  1. REMIFENTANIL [Suspect]
     Indication: MAINTENANCE OF ANAESTHESIA
     Dosage: 0.1 - 0.2 UG/KG/MIN
     Route: 042
  2. RINGER'S [Suspect]
     Route: 042
  3. SEVOFLURANE [Concomitant]
     Indication: MAINTENANCE OF ANAESTHESIA
     Dosage: { 0.5 MINIMUM ALVEOLAR CONCENTRATION
  4. PROPOFOL [Suspect]
     Indication: MAINTENANCE OF ANAESTHESIA
     Dosage: 50-75 MCG/KG/MIN
     Route: 042
  5. ROCURONIUM BROMIDE [Concomitant]
     Indication: ENDOTRACHEAL INTUBATION
  6. FENTANYL-100 [Concomitant]
     Indication: INDUCTION OF ANAESTHESIA

REACTIONS (1)
  - COMPARTMENT SYNDROME [None]
